FAERS Safety Report 4501417-7 (Version None)
Quarter: 2004Q4

REPORT INFORMATION
  Report Type: 
  Country: None (occurrence: None)
  Receive Date: 20041110
  Receipt Date: 20041101
  Transmission Date: 20050328
  Serious: Yes (Hospitalization)
  Sender: FDA-Public Use
  Company Number: MK200411-0053-1

PATIENT
  Age: 82 Year
  Sex: Female

DRUGS (1)
  1. MEPERIDINE HCL [Suspect]
     Indication: PAIN MANAGEMENT
     Dosage: TOTAL OF 1635MG, IV
     Route: 042

REACTIONS (10)
  - ABNORMAL BEHAVIOUR [None]
  - ANXIETY [None]
  - BLOOD CREATININE INCREASED [None]
  - CONFUSIONAL STATE [None]
  - CREATININE RENAL CLEARANCE DECREASED [None]
  - DISORIENTATION [None]
  - DYSKINESIA [None]
  - HALLUCINATION, VISUAL [None]
  - INADEQUATE ANALGESIA [None]
  - TREATMENT NONCOMPLIANCE [None]
